FAERS Safety Report 17613895 (Version 1)
Quarter: 2020Q2

REPORT INFORMATION
  Report Type: Spontaneous
  Country: US (occurrence: US)
  Receive Date: 20200402
  Receipt Date: 20200402
  Transmission Date: 20200713
  Serious: No
  Sender: FDA-Public Use
  Company Number: US-ELI_LILLY_AND_COMPANY-US202003003352

PATIENT
  Age: 1 Year
  Sex: Male

DRUGS (4)
  1. HUMALOG JUNIOR KWIKPEN [Suspect]
     Active Substance: INSULIN LISPRO
     Indication: TYPE 1 DIABETES MELLITUS
     Dosage: 1 U, PRN(0.5-1 UNIT)
     Route: 065
     Dates: start: 20200119
  2. HUMALOG JUNIOR KWIKPEN [Suspect]
     Active Substance: INSULIN LISPRO
     Dosage: 1 U, PRN(0.5-1 UNIT)
     Route: 065
  3. HUMALOG JUNIOR KWIKPEN [Suspect]
     Active Substance: INSULIN LISPRO
     Indication: TYPE 1 DIABETES MELLITUS
     Dosage: 1 U, PRN(0.5-1 UNIT)
     Route: 065
     Dates: start: 20200119
  4. HUMALOG JUNIOR KWIKPEN [Suspect]
     Active Substance: INSULIN LISPRO
     Dosage: 1 U, PRN(0.5-1 UNIT)
     Route: 065

REACTIONS (1)
  - Blood glucose increased [Unknown]

NARRATIVE: CASE EVENT DATE: 202002
